FAERS Safety Report 5790087-6 (Version None)
Quarter: 2008Q2

REPORT INFORMATION
  Report Type: 
  Country: None (occurrence: None)
  Receive Date: 20080626
  Receipt Date: 20080501
  Transmission Date: 20081010
  Serious: No
  Sender: FDA-Public Use
  Company Number: A0672519A

PATIENT

DRUGS (3)
  1. ALLI [Suspect]
     Indication: DRUG USE FOR UNKNOWN INDICATION
  2. HORMONE [Suspect]
  3. VITAMINS [Concomitant]

REACTIONS (14)
  - ABNORMAL FAECES [None]
  - ALOPECIA [None]
  - ARTHRALGIA [None]
  - ARTHROPATHY [None]
  - BLOOD POTASSIUM DECREASED [None]
  - BONE DISORDER [None]
  - DRUG INTERACTION [None]
  - GASTRIC DISORDER [None]
  - GASTROINTESTINAL DISORDER [None]
  - HAIR TEXTURE ABNORMAL [None]
  - HYPOVITAMINOSIS [None]
  - MUSCULAR WEAKNESS [None]
  - MYALGIA [None]
  - PAIN IN EXTREMITY [None]
